FAERS Safety Report 6558514-4 (Version None)
Quarter: 2010Q1

REPORT INFORMATION
  Report Type: 
  Country: None (occurrence: None)
  Receive Date: 20100126
  Receipt Date: 20100113
  Transmission Date: 20100710
  Serious: Yes (Hospitalization)
  Sender: FDA-Public Use
  Company Number: A-US2009-31035

PATIENT
  Age: 77 Year
  Sex: Female

DRUGS (2)
  1. TRACLEER [Suspect]
     Indication: PULMONARY ARTERIAL HYPERTENSION
     Dosage: ORAL
     Route: 048
     Dates: start: 20091111
  2. COUMADUIM (WARFARIN SODIUM) [Concomitant]

REACTIONS (5)
  - EPISTAXIS [None]
  - FATIGUE [None]
  - LUNG DISORDER [None]
  - NASAL DRYNESS [None]
  - SALIVARY HYPERSECRETION [None]
